FAERS Safety Report 8133267-7 (Version None)
Quarter: 2012Q1

REPORT INFORMATION
  Report Type: 
  Country: None (occurrence: None)
  Receive Date: 20120213
  Receipt Date: 20120207
  Transmission Date: 20120608
  Serious: Yes (Other)
  Sender: FDA-Public Use
  Company Number: BR-ROCHE-1033550

PATIENT
  Sex: Female
  Weight: 67 kg

DRUGS (3)
  1. CORTICOIDS [Concomitant]
  2. DICLOFENAC SODIUM [Concomitant]
  3. ACTEMRA [Suspect]
     Indication: RHEUMATOID ARTHRITIS
     Route: 042
     Dates: start: 20111104, end: 20111219

REACTIONS (2)
  - SPINAL DISORDER [None]
  - CERVICOBRACHIAL SYNDROME [None]
